FAERS Safety Report 7340866-9 (Version None)
Quarter: 2011Q1

REPORT INFORMATION
  Report Type: 
  Country: None (occurrence: None)
  Receive Date: 20110309
  Receipt Date: 20110301
  Transmission Date: 20110831
  Serious: Yes (Hospitalization, Other)
  Sender: FDA-Public Use
  Company Number: US-ELI_LILLY_AND_COMPANY-US201103000567

PATIENT
  Sex: Male

DRUGS (7)
  1. LANTUS [Concomitant]
     Indication: DIABETES MELLITUS
     Dosage: 25 U, EACH EVENING
  2. HUMALOG [Suspect]
     Dosage: UNK, AS NEEDED
     Dates: start: 19910101
  3. HUMALOG [Suspect]
     Dosage: UNK, AS NEEDED
  4. HUMALOG [Suspect]
     Dosage: 3 U, 3/D
  5. HUMALOG [Suspect]
     Dosage: 3 U, 3/D
  6. HUMALOG [Suspect]
     Indication: DIABETES MELLITUS
     Dosage: 3 U, 3/D
     Dates: start: 19910101
  7. HUMALOG [Suspect]
     Dosage: UNK, AS NEEDED

REACTIONS (6)
  - MYOCARDIAL INFARCTION [None]
  - SCAR [None]
  - COLONIC OBSTRUCTION [None]
  - BLOOD GLUCOSE DECREASED [None]
  - WRONG DRUG ADMINISTERED [None]
  - COLON CANCER [None]
